FAERS Safety Report 7158167-0 (Version None)
Quarter: 2010Q4

REPORT INFORMATION
  Report Type: 
  Country: None (occurrence: None)
  Receive Date: 20101214
  Receipt Date: 20100505
  Transmission Date: 20110411
  Serious: No
  Sender: FDA-Public Use
  Company Number: US-ASTRAZENECA-2010SE20380

PATIENT
  Sex: Male
  Weight: 79.4 kg

DRUGS (10)
  1. CRESTOR [Suspect]
     Indication: HYPERCHOLESTEROLAEMIA
     Route: 048
     Dates: start: 20100101
  2. CRESTOR [Suspect]
     Route: 048
     Dates: start: 20100101
  3. LIPITOR [Suspect]
     Route: 065
  4. ZOCOR [Suspect]
     Route: 065
  5. ASPIRIN [Concomitant]
  6. TENORMIN [Concomitant]
  7. PLAVIX [Concomitant]
  8. AVODART [Concomitant]
  9. ZETIA [Concomitant]
  10. CODORA [Concomitant]

REACTIONS (3)
  - LIMB DISCOMFORT [None]
  - MYALGIA [None]
  - NOCTURIA [None]
